FAERS Safety Report 10181148 (Version 1)
Quarter: 2014Q2

REPORT INFORMATION
  Report Type: Spontaneous
  Country: US (occurrence: US)
  Receive Date: 20140519
  Receipt Date: 20140519
  Transmission Date: 20141212
  Serious: No
  Sender: FDA-Public Use
  Company Number: US-AMGEN INC.-USASP2014026949

PATIENT
  Age: 66 Year
  Sex: Female

DRUGS (6)
  1. PROLIA [Suspect]
     Indication: PRODUCT USED FOR UNKNOWN INDICATION
     Dosage: UNK
     Route: 065
     Dates: start: 20140409
  2. VICODIN [Concomitant]
  3. FENTANYL [Concomitant]
     Indication: BACK DISORDER
  4. PROTONIX [Concomitant]
     Indication: ULCER HAEMORRHAGE
  5. PEPCID                             /00305201/ [Concomitant]
     Indication: GASTROINTESTINAL DISORDER
  6. LIPITOR [Concomitant]
     Indication: BLOOD CHOLESTEROL

REACTIONS (6)
  - Pain in jaw [Recovered/Resolved]
  - Gingival pain [Recovered/Resolved]
  - Sleep disorder due to a general medical condition [Recovered/Resolved]
  - Skin exfoliation [Recovered/Resolved]
  - Contusion [Recovered/Resolved]
  - Pain in extremity [Recovered/Resolved]
